FAERS Safety Report 7937573-8 (Version None)
Quarter: 2011Q4

REPORT INFORMATION
  Report Type: 
  Country: None (occurrence: None)
  Receive Date: 20111123
  Receipt Date: 20111117
  Transmission Date: 20120403
  Serious: Yes (Hospitalization, Other)
  Sender: FDA-Public Use
  Company Number: US-AMGEN-USASP2011060644

PATIENT
  Age: 51 Year
  Sex: Female

DRUGS (1)
  1. ENBREL [Suspect]
     Indication: RHEUMATOID ARTHRITIS
     Dosage: 50 MG, QWK
     Dates: start: 20070601

REACTIONS (10)
  - ROAD TRAFFIC ACCIDENT [None]
  - MULTIPLE FRACTURES [None]
  - FALL [None]
  - FRACTURED COCCYX [None]
  - PERONEAL NERVE INJURY [None]
  - SKIN INJURY [None]
  - NASAL OBSTRUCTION [None]
  - VISUAL IMPAIRMENT [None]
  - HAEMORRHAGE [None]
  - PERONEAL NERVE PALSY [None]
